FAERS Safety Report 7989497-8 (Version None)
Quarter: 2011Q4

REPORT INFORMATION
  Report Type: 
  Country: None (occurrence: None)
  Receive Date: 20111219
  Receipt Date: 20111003
  Transmission Date: 20120403
  Serious: No
  Sender: FDA-Public Use
  Company Number: US-ASTRAZENECA-2011SE59155

PATIENT
  Age: 77 Year
  Sex: Female

DRUGS (3)
  1. LENOXIN [Concomitant]
     Indication: CARDIAC DISORDER
  2. CRESTOR [Suspect]
     Indication: BLOOD CHOLESTEROL
     Route: 048
     Dates: start: 20110627, end: 20110930
  3. TENENOL [Concomitant]
     Indication: CARDIAC DISORDER

REACTIONS (2)
  - ABDOMINAL DISCOMFORT [None]
  - MALAISE [None]
